FAERS Safety Report 8774242 (Version 1)
Quarter: 2012Q4

REPORT INFORMATION
  Report Type: Report from Study
  Country: JP (occurrence: JP)
  Receive Date: 20120907
  Receipt Date: 20120907
  Transmission Date: 20130627
  Serious: Yes (Other)
  Sender: FDA-Public Use
  Company Number: JP-VERTEX PHARMACEUTICAL INC.-2012-020677

PATIENT
  Age: 49 Year
  Sex: Male

DRUGS (8)
  1. VX-950 [Suspect]
     Indication: HEPATITIS C
     Dosage: 2250 mg, qd
     Route: 048
     Dates: start: 20120517, end: 20120724
  2. RIBAVIRIN [Suspect]
     Indication: HEPATITIS C
     Dosage: 800 mg, qd
     Route: 048
     Dates: start: 20120517, end: 20120724
  3. RIBAVIRIN [Suspect]
     Dosage: 600 mg, qd
     Route: 048
     Dates: start: 20120727
  4. PEGINTERFERON ALFA-2A [Suspect]
     Indication: HEPATITIS C
     Dosage: 1.5 UNK, UNK
     Route: 058
     Dates: start: 20120517, end: 20120719
  5. PEGINTERFERON ALFA-2A [Suspect]
     Dosage: 0.75 UNK, UNK
     Route: 058
     Dates: start: 20120726
  6. LOXONIN [Concomitant]
     Dosage: 60 mg, qd
     Route: 048
     Dates: start: 20120517
  7. CYTOTEC [Concomitant]
     Dosage: 200 mg, qd
     Route: 048
     Dates: start: 20120517
  8. GLYCYRON                           /00466401/ [Concomitant]
     Dosage: 6 DF, qd
     Route: 048

REACTIONS (1)
  - Hepatic encephalopathy [Recovered/Resolved]
